FAERS Safety Report 9862126 (Version 2)
Quarter: 2014Q1

REPORT INFORMATION
  Report Type: Spontaneous
  Country: US (occurrence: US)
  Receive Date: 20140203
  Receipt Date: 20140203
  Transmission Date: 20141002
  Serious: No
  Sender: FDA-Public Use
  Company Number: US-OPTIMER-20130310

PATIENT
  Age: 81 Year
  Sex: Female
  Weight: 102.49 kg

DRUGS (9)
  1. DIFICID [Suspect]
     Indication: CLOSTRIDIUM DIFFICILE COLITIS
     Dosage: 200 MG, BID
     Route: 048
     Dates: start: 20130514, end: 20130525
  2. DIFICID [Suspect]
     Dosage: 200 MG, QD
     Route: 048
     Dates: start: 20130722, end: 20130801
  3. CENTRUM SILVER [Concomitant]
     Dosage: UNK, QD
     Route: 065
  4. CLARITIN-D [Concomitant]
     Dosage: 10-240 MG
     Route: 065
  5. PRILOSEC [Concomitant]
     Dosage: 20 MG, PRN
     Route: 065
  6. ASPIRIN [Concomitant]
     Dosage: 81 MG, QD
     Route: 065
  7. ALBUTEROL [Concomitant]
     Indication: WHEEZING
     Dosage: 17 G , 2 PUFFS QID
  8. VITAMIN D [Concomitant]
     Dosage: 5000 U, QD
     Route: 065
  9. LISINOPRIL [Concomitant]
     Dosage: 40 MG, QD
     Route: 048

REACTIONS (5)
  - Abdominal pain [Not Recovered/Not Resolved]
  - Constipation [Unknown]
  - Clostridium difficile colitis [Recovered/Resolved]
  - Disease recurrence [Recovered/Resolved]
  - Diarrhoea [Recovered/Resolved]
